FAERS Safety Report 5116223-2 (Version None)
Quarter: 2006Q3

REPORT INFORMATION
  Report Type: 
  Country: None (occurrence: None)
  Receive Date: 20060927
  Receipt Date: 20060809
  Transmission Date: 20061208
  Serious: Yes (Other)
  Sender: FDA-Public Use
  Company Number: CA-GLAXOSMITHKLINE-A0616054A

PATIENT
  Age: 38 Year
  Sex: Female
  Weight: 56.8 kg

DRUGS (2)
  1. ADVAIR DISKUS 100/50 [Suspect]
     Indication: DRUG USE FOR UNKNOWN INDICATION
     Dosage: 1PUFF TWICE PER DAY
     Route: 055
     Dates: start: 20060808
  2. BIAXIN [Concomitant]
     Indication: PNEUMONIA
     Dosage: 1000MG UNKNOWN
     Route: 048
     Dates: start: 20060803, end: 20060817

REACTIONS (4)
  - ABDOMINAL SYMPTOM [None]
  - DIARRHOEA [None]
  - LACTOSE INTOLERANCE [None]
  - MUSCLE SPASMS [None]
